FAERS Safety Report 21457574 (Version 1)
Quarter: 2022Q4

REPORT INFORMATION
  Report Type: Spontaneous
  Country: US (occurrence: None)
  Receive Date: 20221014
  Receipt Date: 20221014
  Transmission Date: 20230113
  Serious: Yes (Other)
  Sender: FDA-Public Use
  Company Number: US-ROCHE-3196555

PATIENT
  Age: 69 Year
  Sex: Male

DRUGS (1)
  1. OCRELIZUMAB [Suspect]
     Active Substance: OCRELIZUMAB
     Indication: Primary progressive multiple sclerosis
     Dosage: CYCLE 6
     Route: 065
     Dates: start: 20220802

REACTIONS (2)
  - Crohn^s disease [Unknown]
  - Chronic kidney disease [Recovered/Resolved]
